FAERS Safety Report 5198006-0 (Version None)
Quarter: 2007Q1

REPORT INFORMATION
  Report Type: 
  Country: None (occurrence: None)
  Receive Date: 20070104
  Receipt Date: 20061228
  Transmission Date: 20070707
  Serious: Yes (Hospitalization)
  Sender: FDA-Public Use
  Company Number: FR-JNJFOC-20061206967

PATIENT
  Age: 76 Year
  Sex: Male

DRUGS (9)
  1. HALDOL [Suspect]
     Indication: SLEEP DISORDER
     Route: 048
  2. AMIKLIN [Suspect]
     Indication: STAPHYLOCOCCAL INFECTION
     Route: 042
     Dates: start: 20060625, end: 20060629
  3. AMIKLIN [Suspect]
     Indication: SEPSIS
     Route: 042
     Dates: start: 20060625, end: 20060629
  4. ORBENIN CAP [Suspect]
     Indication: STAPHYLOCOCCAL INFECTION
     Route: 042
  5. ORBENIN CAP [Suspect]
     Indication: SEPSIS
     Route: 042
  6. OFLOXACINE [Suspect]
     Indication: STAPHYLOCOCCAL INFECTION
     Route: 048
  7. OFLOXACINE [Suspect]
     Indication: SEPSIS
     Route: 048
  8. PREVISCAN [Concomitant]
  9. MONO-TILDIEM [Concomitant]

REACTIONS (1)
  - THROMBOCYTOPENIA [None]
